FAERS Safety Report 5030878-2 (Version None)
Quarter: 2006Q2

REPORT INFORMATION
  Report Type: 
  Country: None (occurrence: None)
  Receive Date: 20060621
  Receipt Date: 20060428
  Transmission Date: 20061013
  Serious: Yes (Other)
  Sender: FDA-Public Use
  Company Number: PHFR2006GB01592

PATIENT
  Age: 38 Year
  Sex: Female
  Weight: 95.238 kg

DRUGS (2)
  1. IMIPRAMINE [Concomitant]
     Indication: DEPRESSION
     Dosage: 200 MG
     Route: 048
  2. CLOZARIL [Suspect]
     Indication: SCHIZOPHRENIA
     Dosage: 125MG
     Route: 048
     Dates: start: 20060418, end: 20060423

REACTIONS (3)
  - ALANINE AMINOTRANSFERASE INCREASED [None]
  - HEPATOCELLULAR DAMAGE [None]
  - MALAISE [None]
